FAERS Safety Report 17399135 (Version 6)
Quarter: 2020Q3

REPORT INFORMATION
  Report Type: Report from Study
  Country: None (occurrence: US)
  Receive Date: 20200210
  Receipt Date: 20200909
  Transmission Date: 20201102
  Serious: Yes (Hospitalization, Other)
  Sender: FDA-Public Use
  Company Number: US-ABBVIE-19K-163-3005750-00

PATIENT
  Age: 67 Year
  Sex: Female
  Weight: 77.18 kg

DRUGS (5)
  1. XARELTO [Suspect]
     Active Substance: RIVAROXABAN
     Indication: PRODUCT USED FOR UNKNOWN INDICATION
     Route: 065
  2. HUMIRA [Suspect]
     Active Substance: ADALIMUMAB
     Indication: CROHN^S DISEASE
     Route: 058
     Dates: start: 201504, end: 2020
  3. HUMIRA [Suspect]
     Active Substance: ADALIMUMAB
     Indication: CROHN^S DISEASE
     Route: 058
     Dates: start: 202002
  4. HUMIRA [Suspect]
     Active Substance: ADALIMUMAB
     Indication: PSORIASIS
  5. HUMIRA [Suspect]
     Active Substance: ADALIMUMAB
     Indication: PSORIASIS

REACTIONS (19)
  - Nasopharyngitis [Unknown]
  - Small intestinal obstruction [Unknown]
  - Cataract [Not Recovered/Not Resolved]
  - Bronchitis [Recovered/Resolved]
  - Visual impairment [Recovering/Resolving]
  - Deep vein thrombosis [Recovering/Resolving]
  - Crohn^s disease [Recovered/Resolved]
  - Device breakage [Unknown]
  - Device dislocation [Recovered/Resolved]
  - Blood magnesium decreased [Unknown]
  - Crohn^s disease [Recovered/Resolved]
  - Alopecia [Recovering/Resolving]
  - Mobility decreased [Unknown]
  - Crohn^s disease [Recovered/Resolved]
  - Medical device pain [Unknown]
  - Atrial fibrillation [Recovering/Resolving]
  - Gastrointestinal haemorrhage [Recovered/Resolved]
  - Breast cancer female [Recovered/Resolved]
  - Crohn^s disease [Recovered/Resolved]

NARRATIVE: CASE EVENT DATE: 201709
